FAERS Safety Report 16766596 (Version 8)
Quarter: 2021Q1

REPORT INFORMATION
  Report Type: Spontaneous
  Country: US (occurrence: US)
  Receive Date: 20190903
  Receipt Date: 20210320
  Transmission Date: 20210419
  Serious: Yes (Other)
  Sender: FDA-Public Use
  Company Number: PHEH2019US036509

PATIENT
  Age: 29 Year
  Sex: Female

DRUGS (3)
  1. ONDANSETRON TEVA [Suspect]
     Active Substance: ONDANSETRON
     Indication: MORNING SICKNESS
     Dosage: 08 MG, QD
     Route: 048
     Dates: start: 20130314, end: 20130605
  2. ONDANSETRON AUROBINDO [Suspect]
     Active Substance: ONDANSETRON HYDROCHLORIDE
     Indication: MORNING SICKNESS
     Dosage: 08 MG, QD
     Route: 048
     Dates: start: 20130426, end: 20130526
  3. ZOFRAN ODT [Suspect]
     Active Substance: ONDANSETRON HYDROCHLORIDE
     Indication: MORNING SICKNESS
     Route: 048

REACTIONS (54)
  - Hyperkalaemia [Unknown]
  - Tearfulness [Unknown]
  - Urinary tract infection [Unknown]
  - Diarrhoea [Unknown]
  - Hypoosmolar state [Unknown]
  - Herpes simplex [Unknown]
  - Sinus tachycardia [Unknown]
  - Muscle swelling [Unknown]
  - White blood cell count increased [Unknown]
  - Dyskinesia [Unknown]
  - Thrombocytopenia [Unknown]
  - Major depression [Unknown]
  - Emotional distress [Unknown]
  - Swelling face [Unknown]
  - Headache [Unknown]
  - Dehydration [Unknown]
  - Premature labour [Unknown]
  - Somatic symptom disorder [Unknown]
  - Factitious disorder [Unknown]
  - Haematemesis [Unknown]
  - Constipation [Unknown]
  - Salivary gland neoplasm [Unknown]
  - Tremor [Unknown]
  - Post-traumatic stress disorder [Unknown]
  - Acute stress disorder [Unknown]
  - Maternal exposure during pregnancy [Unknown]
  - Subchorionic haemorrhage [Unknown]
  - Abdominal pain lower [Unknown]
  - Gait disturbance [Unknown]
  - Swelling [Unknown]
  - Product use in unapproved indication [Unknown]
  - Cellulitis [Unknown]
  - Pain in jaw [Unknown]
  - Breech presentation [Unknown]
  - Abdominal pain upper [Unknown]
  - Psychogenic seizure [Unknown]
  - Premature delivery [Unknown]
  - Hypokalaemia [Unknown]
  - Oligohydramnios [Unknown]
  - Injury [Unknown]
  - Leukocytosis [Unknown]
  - Gastroenteritis [Unknown]
  - Genitourinary tract infection [Unknown]
  - Decreased appetite [Unknown]
  - Seizure [Unknown]
  - Vaginal haemorrhage [Unknown]
  - Tooth abscess [Unknown]
  - Premature rupture of membranes [Unknown]
  - Haemangioma [Unknown]
  - Tachycardia [Unknown]
  - Hyponatraemia [Unknown]
  - Benign neoplasm [Unknown]
  - Adjustment disorder with depressed mood [Unknown]
  - Insomnia [Unknown]

NARRATIVE: CASE EVENT DATE: 20130828
